FAERS Safety Report 9687002 (Version 2)
Quarter: 2013Q4

REPORT INFORMATION
  Report Type: Spontaneous
  Country: TR (occurrence: TR)
  Receive Date: 20131113
  Receipt Date: 20131113
  Transmission Date: 20140711
  Serious: Yes (Hospitalization)
  Sender: FDA-Public Use
  Company Number: PHHY2013TR080451

PATIENT
  Sex: Female

DRUGS (2)
  1. HYDROCORTISONE [Suspect]
     Indication: BRONCHOPULMONARY DYSPLASIA
     Dosage: 1 MG/KG/DAY
  2. OXYGEN [Concomitant]

REACTIONS (2)
  - Cardiac hypertrophy [Recovered/Resolved]
  - Hypertension [Recovered/Resolved]
